FAERS Safety Report 20746227 (Version 1)
Quarter: 2022Q2

REPORT INFORMATION
  Report Type: Report from Study
  Country: US (occurrence: US)
  Receive Date: 20220425
  Receipt Date: 20220425
  Transmission Date: 20220720
  Serious: No
  Sender: FDA-Public Use
  Company Number: US-MIRM-000370

PATIENT
  Age: 1 Year
  Sex: Male
  Weight: 7.711 kg

DRUGS (7)
  1. LIVMARLI [Suspect]
     Active Substance: MARALIXIBAT CHLORIDE
     Indication: Pruritus
     Route: 048
     Dates: start: 20211208
  2. 1325420 (GLOBALC3Sep19): Cholestyramine [Concomitant]
     Indication: Product used for unknown indication
     Route: 048
  3. 1328878 (GLOBALC3Sep19): Vitamin E [Concomitant]
     Indication: Product used for unknown indication
     Route: 048
  4. 1324906 (GLOBALC3Sep19): Vitamin C [Concomitant]
     Indication: Product used for unknown indication
     Route: 048
  5. 42946 (GLOBALC3Sep19): Vitamin F [Concomitant]
     Indication: Product used for unknown indication
     Route: 048
  6. 1328777 (GLOBALC3Sep19): Ursodiol [Concomitant]
     Indication: Product used for unknown indication
     Route: 048
  7. 1776253 (GLOBALC3Sep19): Vitamin D [Concomitant]
     Indication: Product used for unknown indication
     Route: 048

REACTIONS (1)
  - Pruritus [Unknown]
